FAERS Safety Report 7953020-4 (Version None)
Quarter: 2011Q4

REPORT INFORMATION
  Report Type: 
  Country: None (occurrence: None)
  Receive Date: 20111201
  Receipt Date: 20111125
  Transmission Date: 20120403
  Serious: Yes (Other)
  Sender: FDA-Public Use
  Company Number: BR-PFIZER INC-2011275328

PATIENT
  Age: 45 Year
  Sex: Female
  Weight: 78.5 kg

DRUGS (4)
  1. SERTRALINE HYDROCHLORIDE [Concomitant]
     Indication: DEPRESSION
     Dosage: 100 MG, 1X/DAY (1 TABLET DAILY)
  2. VARENICLINE TARTRATE [Suspect]
     Indication: SMOKING CESSATION THERAPY
     Dosage: UNK
     Route: 048
     Dates: start: 20111109
  3. DESOGESTREL AND ETHINYL ESTRADIOL [Concomitant]
     Indication: ENDOMETRIOSIS
     Dosage: UNK
     Dates: start: 20000101
  4. LEVOTHYROXINE SODIUM [Concomitant]
     Indication: HYPOTHYROIDISM
     Dosage: 100 MG, 1X/DAY (1 TABLET DAILY)
     Dates: start: 20010101

REACTIONS (7)
  - DECREASED APPETITE [None]
  - IRRITABILITY [None]
  - MALAISE [None]
  - FEELING ABNORMAL [None]
  - INSOMNIA [None]
  - DISTURBANCE IN ATTENTION [None]
  - ANXIETY [None]
